FAERS Safety Report 10699397 (Version 3)
Quarter: 2015Q2

REPORT INFORMATION
  Report Type: Spontaneous
  Country: US (occurrence: US)
  Receive Date: 20150109
  Receipt Date: 20150406
  Transmission Date: 20150821
  Serious: Yes (Other)
  Sender: FDA-Public Use
  Company Number: US-ROCHE-1492304

PATIENT
  Age: 48 Year
  Sex: Female

DRUGS (5)
  1. RELPAX [Concomitant]
     Active Substance: ELETRIPTAN HYDROBROMIDE
     Indication: MIGRAINE
     Route: 065
  2. SOVALDI [Suspect]
     Active Substance: SOFOSBUVIR
     Indication: CHRONIC HEPATITIS C
     Dosage: IN AM
     Route: 065
     Dates: start: 20141014, end: 20150102
  3. ALPRAZOLAM. [Concomitant]
     Active Substance: ALPRAZOLAM
     Route: 065
  4. PEGASYS [Suspect]
     Active Substance: PEGINTERFERON ALFA-2A
     Indication: CHRONIC HEPATITIS C
     Route: 058
     Dates: start: 20141014, end: 20150102
  5. RIBASPHERE RIBAPAK [Suspect]
     Active Substance: RIBAVIRIN
     Indication: CHRONIC HEPATITIS C
     Dosage: 400MG IN AM, 600MG IN PM, TOTAL OF 1000MG PER DAY.
     Route: 048
     Dates: start: 20141014, end: 20150102

REACTIONS (35)
  - White blood cell count decreased [Recovering/Resolving]
  - Platelet count decreased [Recovering/Resolving]
  - Hepatitis C virus test positive [Not Recovered/Not Resolved]
  - Urticaria [Recovered/Resolved]
  - Decreased appetite [Unknown]
  - Arthralgia [Unknown]
  - Dizziness [Unknown]
  - Nausea [Unknown]
  - Breast cyst [Unknown]
  - Skin irritation [Recovering/Resolving]
  - Treatment failure [Unknown]
  - Syncope [Unknown]
  - Insomnia [Unknown]
  - Irritability [Unknown]
  - Respiratory disorder [Unknown]
  - Fatigue [Unknown]
  - Migraine [Unknown]
  - Hypophagia [Unknown]
  - Blood test abnormal [Unknown]
  - Vomiting [Unknown]
  - Blood pressure decreased [Unknown]
  - Pruritus [Unknown]
  - Alopecia [Not Recovered/Not Resolved]
  - Dry skin [Recovering/Resolving]
  - Loss of consciousness [Unknown]
  - Headache [Unknown]
  - Myalgia [Unknown]
  - Cyst [Unknown]
  - Hypotension [Unknown]
  - Full blood count decreased [Recovering/Resolving]
  - Weight decreased [Unknown]
  - Drug intolerance [Not Recovered/Not Resolved]
  - Thyroid cyst [Unknown]
  - Feeling abnormal [Unknown]
  - Neutropenia [Recovering/Resolving]

NARRATIVE: CASE EVENT DATE: 20141112
